FAERS Safety Report 19859178 (Version 2)
Quarter: 2022Q3

REPORT INFORMATION
  Report Type: Other
  Country: CA (occurrence: CA)
  Receive Date: 20210921
  Receipt Date: 20220926
  Transmission Date: 20221027
  Serious: Yes (Other)
  Sender: FDA-Public Use
  Company Number: CA-APOTEX-2021AP017496

PATIENT
  Age: 72 Year
  Sex: Male
  Weight: 97 kg

DRUGS (11)
  1. PREDNISONE [Suspect]
     Active Substance: PREDNISONE
     Indication: Product used for unknown indication
     Dosage: UNK
     Route: 065
  2. AMOXICILLIN [Suspect]
     Active Substance: AMOXICILLIN
     Indication: Product used for unknown indication
     Dosage: UNK
     Route: 065
  3. AZITHROMYCIN [Suspect]
     Active Substance: AZITHROMYCIN
     Indication: Product used for unknown indication
     Dosage: UNK
     Route: 065
  4. FUROSEMIDE [Suspect]
     Active Substance: FUROSEMIDE
     Indication: Product used for unknown indication
     Dosage: UNK
     Route: 065
  5. ALBUTEROL [Suspect]
     Active Substance: ALBUTEROL
     Indication: Product used for unknown indication
     Dosage: UNK
     Route: 065
  6. ENBREL [Suspect]
     Active Substance: ETANERCEPT
     Indication: Rheumatoid arthritis
     Dosage: UNK
     Route: 065
  7. ZENHALE [Suspect]
     Active Substance: FORMOTEROL FUMARATE\MOMETASONE FUROATE
     Indication: Product used for unknown indication
     Dosage: 2 DOSAGE FORM, BID
     Route: 065
  8. LASIX [Suspect]
     Active Substance: FUROSEMIDE
     Indication: Product used for unknown indication
     Dosage: UNK
     Route: 065
  9. MEPOLIZUMAB [Suspect]
     Active Substance: MEPOLIZUMAB
     Indication: Asthma
     Dosage: 100 MILLIGRAM
     Route: 042
  10. VENTOLIN [Suspect]
     Active Substance: ALBUTEROL SULFATE
     Indication: Product used for unknown indication
     Dosage: UNK
     Route: 065
  11. SPIRIVA [Suspect]
     Active Substance: TIOTROPIUM BROMIDE MONOHYDRATE
     Indication: Product used for unknown indication
     Dosage: 18 MICROGRAM, QD
     Route: 065

REACTIONS (38)
  - Arthritis [Unknown]
  - Asthma [Unknown]
  - Full blood count abnormal [Unknown]
  - Bronchial neoplasm benign [Unknown]
  - Bronchial wall thickening [Unknown]
  - Bronchiectasis [Unknown]
  - Chronic obstructive pulmonary disease [Unknown]
  - Condition aggravated [Unknown]
  - Cough [Unknown]
  - Drug dependence [Unknown]
  - Dyspnoea exertional [Unknown]
  - Exposure to allergen [Unknown]
  - Immunosuppression [Unknown]
  - Increased bronchial secretion [Unknown]
  - Interstitial lung disease [Unknown]
  - Obstructive airways disorder [Unknown]
  - Off label use [Unknown]
  - Peripheral swelling [Unknown]
  - Pleural fibrosis [Unknown]
  - Pollakiuria [Unknown]
  - Productive cough [Unknown]
  - Pulmonary congestion [Unknown]
  - Pulmonary fibrosis [Unknown]
  - Rheumatoid arthritis [Unknown]
  - Rhinitis allergic [Unknown]
  - Rib fracture [Unknown]
  - Sputum discoloured [Unknown]
  - Sputum increased [Unknown]
  - Type 2 diabetes mellitus [Unknown]
  - Upper-airway cough syndrome [Unknown]
  - Wheezing [Unknown]
  - Malaise [Unknown]
  - Cardiac failure congestive [Unknown]
  - Infection [Unknown]
  - Nasopharyngitis [Unknown]
  - Viral infection [Unknown]
  - Weight increased [Unknown]
  - Bronchitis haemophilus [Unknown]
